FAERS Safety Report 9631725 (Version 1)
Quarter: 2013Q4

REPORT INFORMATION
  Report Type: Spontaneous
  Country: US (occurrence: US)
  Receive Date: 20131018
  Receipt Date: 20131018
  Transmission Date: 20140711
  Serious: Yes (Life-Threatening, Hospitalization, Other)
  Sender: FDA-Public Use
  Company Number: US-ELI_LILLY_AND_COMPANY-US201310004389

PATIENT
  Age: 71 Year
  Sex: Male

DRUGS (5)
  1. HUMALOG LISPRO [Suspect]
     Indication: TYPE 2 DIABETES MELLITUS
     Dosage: 10 U, EACH MORNING
     Dates: start: 20131004
  2. HUMALOG LISPRO [Suspect]
     Dosage: 34 U, EACH EVENING
     Dates: start: 20131004
  3. HUMALOG LISPRO [Suspect]
     Dosage: 10 U, EACH MORNING
     Dates: end: 20131010
  4. HUMALOG LISPRO [Suspect]
     Dosage: 34 U, EACH EVENING
     Dates: end: 20131010
  5. LANTUS [Concomitant]

REACTIONS (5)
  - Hypoglycaemic unconsciousness [Unknown]
  - Shock [Unknown]
  - Body temperature decreased [Unknown]
  - Incorrect dose administered [Unknown]
  - Incorrect product storage [Unknown]
